FAERS Safety Report 16924462 (Version 1)
Quarter: 2019Q4

REPORT INFORMATION
  Report Type: Spontaneous
  Country: US (occurrence: US)
  Receive Date: 20191016
  Receipt Date: 20191016
  Transmission Date: 20200122
  Serious: Yes (Hospitalization, Other)
  Sender: FDA-Public Use
  Company Number: US-APOTEX-2019AP023682

PATIENT
  Age: 47 Year
  Sex: Male

DRUGS (1)
  1. VERAPAMIL HYDROCHLORIDE. [Suspect]
     Active Substance: VERAPAMIL HYDROCHLORIDE
     Indication: PRODUCT USED FOR UNKNOWN INDICATION
     Dosage: UNK UNK, SINGLE
     Route: 065

REACTIONS (5)
  - Cardiogenic shock [Recovered/Resolved]
  - Toxicity to various agents [Unknown]
  - Unresponsive to stimuli [Unknown]
  - Intentional overdose [Unknown]
  - Suicide attempt [Unknown]
